FAERS Safety Report 9916107 (Version 1)
Quarter: 2014Q1

REPORT INFORMATION
  Report Type: Spontaneous
  Country: US (occurrence: None)
  Receive Date: 20140220
  Receipt Date: 20140220
  Transmission Date: 20141002
  Serious: No
  Sender: FDA-Public Use
  Company Number: None

PATIENT
  Age: 59 Year
  Sex: Female
  Weight: 82.1 kg

DRUGS (1)
  1. PERJETA [Suspect]
     Indication: BREAST CANCER
     Route: 042
     Dates: start: 20131218, end: 20131218

REACTIONS (8)
  - Rash [None]
  - Rash [None]
  - Erythema [None]
  - Nausea [None]
  - Vomiting [None]
  - Diarrhoea [None]
  - Hypoaesthesia [None]
  - Paraesthesia [None]
